FAERS Safety Report 7535292-3 (Version None)
Quarter: 2011Q2

REPORT INFORMATION
  Report Type: 
  Country: None (occurrence: None)
  Receive Date: 20110609
  Receipt Date: 20071210
  Transmission Date: 20111010
  Serious: Yes (Life-Threatening, Hospitalization)
  Sender: FDA-Public Use
  Company Number: PHHO2007DE20261

PATIENT
  Sex: Male
  Weight: 84.8 kg

DRUGS (2)
  1. HYDROXYUREA [Concomitant]
     Indication: CHRONIC MYELOID LEUKAEMIA
     Dosage: UNKNOWN
     Dates: start: 20050228
  2. GLEEVEC [Suspect]
     Indication: CHRONIC MYELOID LEUKAEMIA
     Dosage: 400 MG, QD
     Route: 048
     Dates: start: 20050228, end: 20071018

REACTIONS (4)
  - METASTASES TO LIVER [None]
  - NEOPLASM MALIGNANT [None]
  - PANCREATIC CARCINOMA METASTATIC [None]
  - METASTASES TO LYMPH NODES [None]
